FAERS Safety Report 9944733 (Version 1)
Quarter: 2014Q1

REPORT INFORMATION
  Report Type: Report from Study
  Country: US (occurrence: US)
  Receive Date: 20140303
  Receipt Date: 20140303
  Transmission Date: 20141002
  Serious: No
  Sender: FDA-Public Use
  Company Number: US-ABBVIE-13P-163-1053919-00

PATIENT
  Age: 37 Year
  Sex: Male
  Weight: 108 kg

DRUGS (6)
  1. HUMIRA [Suspect]
     Indication: PSORIATIC ARTHROPATHY
     Dates: start: 201210
  2. HUMIRA [Suspect]
     Indication: PSORIASIS
  3. LORTAB [Concomitant]
     Indication: PAIN
  4. MELOXICAM [Concomitant]
     Indication: PSORIATIC ARTHROPATHY
  5. TESTOSTERONE [Concomitant]
     Indication: BLOOD TESTOSTERONE DECREASED
  6. FLU VACCINE [Concomitant]
     Indication: ANTIVIRAL PROPHYLAXIS
     Dates: start: 201302, end: 201302

REACTIONS (2)
  - Pyrexia [Recovered/Resolved]
  - Pain [Recovered/Resolved]
